FAERS Safety Report 8314911-8 (Version None)
Quarter: 2012Q2

REPORT INFORMATION
  Report Type: 
  Country: None (occurrence: None)
  Receive Date: 20120426
  Receipt Date: 20120419
  Transmission Date: 20120825
  Serious: No
  Sender: FDA-Public Use
  Company Number: AU-JNJFOC-20120405588

PATIENT
  Sex: Male
  Weight: 53 kg

DRUGS (12)
  1. STELARA [Suspect]
     Indication: PSORIASIS
     Route: 058
     Dates: start: 20110421
  2. STELARA [Suspect]
     Route: 058
     Dates: start: 20091123
  3. STELARA [Suspect]
     Route: 058
     Dates: start: 20100830
  4. STELARA [Suspect]
     Route: 058
     Dates: start: 20101122
  5. STELARA [Suspect]
     Route: 058
     Dates: start: 20110816
  6. STELARA [Suspect]
     Route: 058
     Dates: start: 20111011
  7. STELARA [Suspect]
     Route: 058
     Dates: start: 20120106
  8. STELARA [Suspect]
     Route: 058
     Dates: start: 20100607
  9. STELARA [Suspect]
     Route: 058
     Dates: end: 20120401
  10. STELARA [Suspect]
     Route: 058
     Dates: start: 20120302
  11. STELARA [Suspect]
     Route: 058
     Dates: start: 20110214
  12. STELARA [Suspect]
     Route: 058
     Dates: start: 20110616

REACTIONS (1)
  - PSORIATIC ARTHROPATHY [None]
